FAERS Safety Report 14772656 (Version 1)
Quarter: 2018Q2

REPORT INFORMATION
  Report Type: Spontaneous
  Country: RO (occurrence: RO)
  Receive Date: 20180418
  Receipt Date: 20180418
  Transmission Date: 20180711
  Serious: Yes (Hospitalization, Other)
  Sender: FDA-Public Use
  Company Number: RO-AXELLIA-001580

PATIENT
  Age: 60 Year
  Sex: Male

DRUGS (6)
  1. CYANOCOBALAMIN. [Concomitant]
     Active Substance: CYANOCOBALAMIN
     Indication: MALABSORPTION
  2. METRONIDAZOLE. [Suspect]
     Active Substance: METRONIDAZOLE
     Indication: CLOSTRIDIUM DIFFICILE INFECTION
     Dosage: 500 MG, 3X/DAY
  3. VANCOMYCIN [Suspect]
     Active Substance: VANCOMYCIN
     Indication: CLOSTRIDIUM DIFFICILE INFECTION
     Dosage: IN PROGRESSIVE DOSAGE, UP TO 500 MG X 4 TIMES DAILY
  4. FERRUM [Concomitant]
     Active Substance: FERROUS FUMARATE
     Indication: MALABSORPTION
  5. CARBAMAZEPINE. [Concomitant]
     Active Substance: CARBAMAZEPINE
     Indication: EPILEPSY
  6. FENITOINA [Concomitant]
     Active Substance: PHENYTOIN
     Indication: EPILEPSY

REACTIONS (2)
  - Drug resistance [Unknown]
  - Drug ineffective [Unknown]
